FAERS Safety Report 19720345 (Version 1)
Quarter: 2021Q3

REPORT INFORMATION
  Report Type: Report from Study
  Country: US (occurrence: US)
  Receive Date: 20210818
  Receipt Date: 20210818
  Transmission Date: 20211014
  Serious: Yes (Other)
  Sender: FDA-Public Use
  Company Number: US-ROCHE-2890774

PATIENT
  Age: 65 Year

DRUGS (2)
  1. OBINUTUZUMAB. [Suspect]
     Active Substance: OBINUTUZUMAB
     Indication: CHRONIC LYMPHOCYTIC LEUKAEMIA
     Dosage: CYCLE 1, DAY 1? 100 MG CYCLE 1, DAY 2 ? 900 MG CYCLE 1, DAY 8 ? 1000 MG CYCLE 1, DAY 15 ?1000 MG CYC
     Route: 042
  2. VENETOCLAX. [Suspect]
     Active Substance: VENETOCLAX
     Indication: CHRONIC LYMPHOCYTIC LEUKAEMIA
     Dosage: CYCLE 1, DAY 22 TO 28 ?20 MG DAILY CYCLE 2, DAY 1 TO DAY 7 ?50 MG DAILY CYCLE 2, DAY 8 TO DAY 14? 10
     Route: 065

REACTIONS (1)
  - Hypertension [Unknown]

NARRATIVE: CASE EVENT DATE: 20210126
